FAERS Safety Report 8980068 (Version 1)
Quarter: 2012Q4

REPORT INFORMATION
  Report Type: 
  Country: BR (occurrence: BR)
  Receive Date: 20121221
  Receipt Date: 20121221
  Transmission Date: 20130627
  Serious: Yes (Hospitalization, Other)
  Sender: FDA-Public Use
  Company Number: BR-PFIZER INC-2012319738

PATIENT
  Age: 44 Year
  Sex: Female

DRUGS (4)
  1. CELEBRA [Suspect]
     Indication: SPINAL DISORDER
     Dosage: 1 capsule (200 mg), 1x/day
     Route: 048
  2. CLONAZEPAM [Concomitant]
     Dosage: UNK
     Dates: start: 2011
  3. FLUOXETINE [Concomitant]
     Dosage: UNK
     Dates: start: 201206
  4. PARACETAMOL [Concomitant]
     Dosage: UNK

REACTIONS (4)
  - Spinal disorder [Unknown]
  - Intervertebral disc protrusion [Unknown]
  - Hypoaesthesia [Unknown]
  - Pain in extremity [Not Recovered/Not Resolved]
